FAERS Safety Report 16732223 (Version 6)
Quarter: 2020Q3

REPORT INFORMATION
  Report Type: Report from Study
  Country: US (occurrence: US)
  Receive Date: 20190822
  Receipt Date: 20200828
  Transmission Date: 20201102
  Serious: Yes (Hospitalization, Other)
  Sender: FDA-Public Use
  Company Number: PHEH2019US034309

PATIENT
  Age: 55 Year
  Sex: Female

DRUGS (5)
  1. TREPROSTINIL. [Suspect]
     Active Substance: TREPROSTINIL
     Indication: PULMONARY ARTERIAL HYPERTENSION
     Dosage: UNK (38NG/KG/MIN, CONTINUOUS)
     Route: 041
     Dates: start: 201901
  2. TREPROSTINIL. [Suspect]
     Active Substance: TREPROSTINIL
     Dosage: UNK (33NG/KG/MIN, CONTINUOUS)
     Route: 041
     Dates: start: 20190614
  3. CIPROFLOXACIN. [Suspect]
     Active Substance: CIPROFLOXACIN
     Indication: URINARY TRACT INFECTION
     Dosage: UNK
     Route: 065
  4. TREPROSTINIL. [Suspect]
     Active Substance: TREPROSTINIL
     Dosage: UNK (42NG/KG/MIN, CONTINUOUS)
     Route: 042
     Dates: start: 20190418
  5. SILDENAFIL. [Concomitant]
     Active Substance: SILDENAFIL
     Indication: PRODUCT USED FOR UNKNOWN INDICATION
     Dosage: UNK
     Route: 065

REACTIONS (10)
  - Gastrooesophageal reflux disease [Unknown]
  - Urinary tract infection [Unknown]
  - Nausea [Unknown]
  - Adverse drug reaction [Recovering/Resolving]
  - Catheter site haemorrhage [Unknown]
  - Fluid retention [Recovering/Resolving]
  - Dyspnoea [Recovering/Resolving]
  - Chest pain [Unknown]
  - Infusion site thrombosis [Unknown]
  - Pain [Unknown]

NARRATIVE: CASE EVENT DATE: 20190814
